FAERS Safety Report 5414744-6 (Version None)
Quarter: 2007Q3

REPORT INFORMATION
  Report Type: 
  Country: None (occurrence: None)
  Receive Date: 20070813
  Receipt Date: 20070801
  Transmission Date: 20080115
  Serious: Yes (Death, Other)
  Sender: FDA-Public Use
  Company Number: 07H-163-0312993-00

PATIENT
  Age: 61 Year
  Sex: Male

DRUGS (2)
  1. CLINDAMYCIN INJECTION (CLINDAMYCIN PHOSPHATE INJECTION) (CLINDAMYCIN) [Suspect]
     Indication: SKIN ULCER
  2. CEFOTETAN [Suspect]
     Indication: SKIN ULCER

REACTIONS (3)
  - ACUTE HEPATIC FAILURE [None]
  - HAEMOLYTIC ANAEMIA [None]
  - RENAL FAILURE [None]
